FAERS Safety Report 6396861-X (Version None)
Quarter: 2009Q4

REPORT INFORMATION
  Report Type: 
  Country: None (occurrence: None)
  Receive Date: 20091012
  Receipt Date: 20090601
  Transmission Date: 20100525
  Serious: No
  Sender: FDA-Public Use
  Company Number: US-ASTRAZENECA-2009UW13912

PATIENT
  Age: 65 Year
  Sex: Female
  Weight: 72.6 kg

DRUGS (3)
  1. SYMBICORT [Suspect]
     Indication: ASTHMA
     Dosage: 160/4.5 UG
     Route: 055
     Dates: start: 20090401
  2. SYNTHROID [Concomitant]
     Indication: THYROID DISORDER
  3. CLARITIN [Concomitant]
     Indication: HYPERSENSITIVITY

REACTIONS (5)
  - BLOOD URINE PRESENT [None]
  - BRONCHITIS [None]
  - OROPHARYNGEAL PAIN [None]
  - PULMONARY CONGESTION [None]
  - WHEEZING [None]
